FAERS Safety Report 11636159 (Version 1)
Quarter: 2015Q4

REPORT INFORMATION
  Report Type: Report from Study
  Country: AR (occurrence: AR)
  Receive Date: 20151016
  Receipt Date: 20151016
  Transmission Date: 20160304
  Serious: Yes (Other)
  Sender: FDA-Public Use
  Company Number: AR-ROCHE-1646964

PATIENT
  Sex: Female

DRUGS (3)
  1. AVASTIN [Suspect]
     Active Substance: BEVACIZUMAB
     Indication: CERVIX CARCINOMA
     Route: 065
  2. CARBOPLATIN. [Concomitant]
     Active Substance: CARBOPLATIN
  3. PACLITAXEL. [Concomitant]
     Active Substance: PACLITAXEL

REACTIONS (3)
  - Toxicity to various agents [Unknown]
  - Haemorrhage [Unknown]
  - Thrombocytopenia [Unknown]
